FAERS Safety Report 6968740-8 (Version None)
Quarter: 2010Q3

REPORT INFORMATION
  Report Type: 
  Country: None (occurrence: None)
  Receive Date: 20100907
  Receipt Date: 20100901
  Transmission Date: 20110219
  Serious: Yes (Other)
  Sender: FDA-Public Use
  Company Number: US-MERCK-1009USA00069

PATIENT
  Age: 55 Year
  Sex: Female
  Weight: 120 kg

DRUGS (11)
  1. SINGULAIR [Suspect]
     Indication: MULTIPLE ALLERGIES
     Route: 048
     Dates: start: 20100316
  2. OMNARIS [Suspect]
     Indication: MULTIPLE ALLERGIES
     Route: 065
     Dates: start: 20100316, end: 20100101
  3. OMNARIS [Suspect]
     Route: 065
     Dates: start: 20100101, end: 20100513
  4. OMNARIS [Suspect]
     Indication: COUGH
     Route: 065
     Dates: start: 20100316, end: 20100101
  5. OMNARIS [Suspect]
     Route: 065
     Dates: start: 20100101, end: 20100513
  6. DIOVAN [Suspect]
     Indication: HYPERTENSION
     Route: 065
     Dates: start: 20100317
  7. XOPENEX HFA [Concomitant]
     Route: 055
  8. LISINOPRIL [Concomitant]
     Route: 048
     Dates: start: 20090101, end: 20100316
  9. CELEXA [Concomitant]
     Route: 065
  10. NEXIUM [Concomitant]
     Route: 065
  11. VITAMINS (UNSPECIFIED) [Concomitant]
     Route: 065

REACTIONS (2)
  - DEAFNESS UNILATERAL [None]
  - TINNITUS [None]
